FAERS Safety Report 4615437-5 (Version None)
Quarter: 2005Q1

REPORT INFORMATION
  Report Type: 
  Country: None (occurrence: None)
  Receive Date: 20050322
  Receipt Date: 20050121
  Transmission Date: 20050727
  Serious: Yes (Hospitalization)
  Sender: FDA-Public Use
  Company Number: US-ABBOTT-05P-163-0287971-00

PATIENT
  Sex: Male

DRUGS (5)
  1. RITONAVIR SOFT GELATIN CAPSULES [Suspect]
     Indication: HIV INFECTION
     Route: 048
     Dates: start: 20041104, end: 20041108
  2. RITONAVIR SOFT GELATIN CAPSULES [Suspect]
     Route: 048
     Dates: start: 20041002, end: 20041011
  3. ATAZANAVIR TABLET [Suspect]
     Indication: HIV INFECTION
     Route: 048
     Dates: start: 20041104, end: 20041108
  4. ATAZANAVIR TABLET [Suspect]
     Route: 048
     Dates: start: 20041002, end: 20041011
  5. FOSAMPRENAVIR TABLET [Suspect]
     Indication: HIV INFECTION
     Route: 048
     Dates: start: 20041104, end: 20041108

REACTIONS (7)
  - COMPUTERISED TOMOGRAM ABNORMAL [None]
  - HEADACHE [None]
  - INSOMNIA [None]
  - NAUSEA [None]
  - PRURITUS [None]
  - RASH [None]
  - REFUSAL OF TREATMENT BY PATIENT [None]
